FAERS Safety Report 10261460 (Version 1)
Quarter: 2014Q2

REPORT INFORMATION
  Report Type: Spontaneous
  Country: US (occurrence: US)
  Receive Date: 20140626
  Receipt Date: 20140626
  Transmission Date: 20141212
  Serious: Yes (Hospitalization)
  Sender: FDA-Public Use
  Company Number: US-PFIZER INC-2014171608

PATIENT
  Age: 42 Year
  Sex: Male

DRUGS (2)
  1. METRONIDAZOLE [Suspect]
     Dosage: UNK
  2. CIPROFLOXACIN [Concomitant]
     Dosage: UNK

REACTIONS (1)
  - Substance-induced psychotic disorder [Recovered/Resolved]
